FAERS Safety Report 5227046-8 (Version None)
Quarter: 2007Q1

REPORT INFORMATION
  Report Type: 
  Country: None (occurrence: None)
  Receive Date: 20070201
  Receipt Date: 20070201
  Transmission Date: 20070707
  Serious: No
  Sender: FDA-Public Use
  Company Number: None

PATIENT
  Sex: Male
  Weight: 91.6266 kg

DRUGS (6)
  1. METOPROLOL TARTRATE [Suspect]
     Indication: FEAR
     Dosage: 75MG TWICE PER DAY BUCCAL
     Route: 002
     Dates: start: 20061216, end: 20070130
  2. METOPROLOL TARTRATE [Suspect]
     Indication: THROMBOSIS
     Dosage: 75MG TWICE PER DAY BUCCAL
     Route: 002
     Dates: start: 20061216, end: 20070130
  3. METOPROLOL TARTRATE [Suspect]
     Indication: VENTRICULAR EXTRASYSTOLES
     Dosage: 75MG TWICE PER DAY BUCCAL
     Route: 002
     Dates: start: 20061216, end: 20070130
  4. COUMADIN [Suspect]
     Indication: FEAR
     Dosage: 7.5MG ONCE PER DAY BUCCAL
     Route: 002
     Dates: start: 20061216, end: 20070130
  5. COUMADIN [Suspect]
     Indication: THROMBOSIS
     Dosage: 7.5MG ONCE PER DAY BUCCAL
     Route: 002
     Dates: start: 20061216, end: 20070130
  6. COUMADIN [Suspect]
     Indication: VENTRICULAR EXTRASYSTOLES
     Dosage: 7.5MG ONCE PER DAY BUCCAL
     Route: 002
     Dates: start: 20061216, end: 20070130

REACTIONS (4)
  - BLOOD PRESSURE INCREASED [None]
  - HEART RATE INCREASED [None]
  - RESPIRATORY FAILURE [None]
  - VENTRICULAR EXTRASYSTOLES [None]
